FAERS Safety Report 17823717 (Version 1)
Quarter: 2020Q2

REPORT INFORMATION
  Report Type: Spontaneous
  Country: US (occurrence: US)
  Receive Date: 20200525
  Receipt Date: 20200525
  Transmission Date: 20200714
  Serious: No
  Sender: FDA-Public Use
  Company Number: None

PATIENT
  Age: 41 Year
  Sex: Male
  Weight: 101.25 kg

DRUGS (8)
  1. AMANTADINE. [Concomitant]
     Active Substance: AMANTADINE HYDROCHLORIDE
  2. STUDIO SELECTION SUN - SUNSCREEN SPRAY [AVOBENZONE\HOMOSALATE\OCTISALATE\OCTOCRYLENE] [Suspect]
     Active Substance: AVOBENZONE\HOMOSALATE\OCTISALATE\OCTOCRYLENE
     Indication: SKIN CANCER
     Dosage: ?          QUANTITY:5.5 OUNCE(S);?
     Route: 061
     Dates: start: 20200518, end: 20200525
  3. STUDIO SELECTION SUN - SUNSCREEN SPRAY [AVOBENZONE\HOMOSALATE\OCTISALATE\OCTOCRYLENE] [Suspect]
     Active Substance: AVOBENZONE\HOMOSALATE\OCTISALATE\OCTOCRYLENE
     Indication: PROPHYLAXIS
     Dosage: ?          QUANTITY:5.5 OUNCE(S);?
     Route: 061
     Dates: start: 20200518, end: 20200525
  4. MELALEUCA MEN^S MULTIVITAMIN PACKS [Concomitant]
  5. STUDIO SELECTION SUN - SUNSCREEN SPRAY [AVOBENZONE\HOMOSALATE\OCTISALATE\OCTOCRYLENE] [Suspect]
     Active Substance: AVOBENZONE\HOMOSALATE\OCTISALATE\OCTOCRYLENE
     Indication: PROPHYLAXIS AGAINST SOLAR RADIATION
     Dosage: ?          QUANTITY:5.5 OUNCE(S);?
     Route: 061
     Dates: start: 20200518, end: 20200525
  6. ROPINIROLE. [Concomitant]
     Active Substance: ROPINIROLE
  7. WELLBUTRIN 300 ER [Concomitant]
  8. MIRAPEX [Concomitant]
     Active Substance: PRAMIPEXOLE DIHYDROCHLORIDE

REACTIONS (4)
  - Pruritus [None]
  - Rash papular [None]
  - Rash [None]
  - Application site rash [None]

NARRATIVE: CASE EVENT DATE: 20200525
